FAERS Safety Report 4309721-2 (Version None)
Quarter: 2004Q1

REPORT INFORMATION
  Report Type: 
  Country: None (occurrence: None)
  Receive Date: 20040301
  Receipt Date: 20040220
  Transmission Date: 20041129
  Serious: Yes (Death)
  Sender: FDA-Public Use
  Company Number: US-JNJFOC-20040204998

PATIENT
  Age: 80 Year
  Sex: Female
  Weight: 72.5755 kg

DRUGS (15)
  1. INFLIXIMAB (INFLIXIMAB, RECOMBINANT) LYOPHILIZED POWDER [Suspect]
     Indication: RHEUMATOID ARTHRITIS
     Dosage: INTRAVENOUS
     Route: 042
     Dates: start: 20020302, end: 20030517
  2. PREDNISONE [Concomitant]
  3. VIOXX [Concomitant]
  4. METHOTREXATE [Concomitant]
  5. FOLIC ACID [Concomitant]
  6. ULTRACET (TRAMADOL/APAP) [Concomitant]
  7. SYNTHROID [Concomitant]
  8. NORVASC [Concomitant]
  9. HYZAAR [Concomitant]
  10. BENACAR (OLMESARTAN) [Concomitant]
  11. LASIX [Concomitant]
  12. ESTRADIOL [Concomitant]
  13. ACTONEL [Concomitant]
  14. NEXIUM [Concomitant]
  15. MYLANTA (MYLANTA) [Concomitant]

REACTIONS (1)
  - PROCEDURAL COMPLICATION [None]
